FAERS Safety Report 17603222 (Version 12)
Quarter: 2021Q3

REPORT INFORMATION
  Report Type: Spontaneous
  Country: US (occurrence: US)
  Receive Date: 20200331
  Receipt Date: 20210726
  Transmission Date: 20211014
  Serious: No
  Sender: FDA-Public Use
  Company Number: US-GLAXOSMITHKLINE-US2020AMR053192

PATIENT
  Sex: Female

DRUGS (13)
  1. ZEJULA [Suspect]
     Active Substance: NIRAPARIB
     Dosage: 100 MG, DAILY
     Dates: start: 20200226
  2. ZEJULA [Suspect]
     Active Substance: NIRAPARIB
     Dosage: 100 MG, QD
  3. ZEJULA [Suspect]
     Active Substance: NIRAPARIB
     Dosage: 100 MG, QD
     Route: 048
  4. ZEJULA [Suspect]
     Active Substance: NIRAPARIB
     Indication: OVARIAN CANCER
     Dosage: 200 MG, QD
     Dates: start: 20200226
  5. ZEJULA [Suspect]
     Active Substance: NIRAPARIB
     Dosage: 200 MG, QD
     Dates: start: 20200226, end: 20200323
  6. ZEJULA [Suspect]
     Active Substance: NIRAPARIB
     Dosage: 100 MG, QD
     Route: 048
  7. ZEJULA [Suspect]
     Active Substance: NIRAPARIB
     Dosage: 100 MG, QOD (100MG ALTERNATING WITH 200MG Q.O.D)
     Route: 048
  8. ZEJULA [Suspect]
     Active Substance: NIRAPARIB
     Dosage: 200 MG, QOD (100MG ALTERNATING WITH 200MG Q.O.D)
     Route: 048
  9. ZEJULA [Suspect]
     Active Substance: NIRAPARIB
     Dosage: UNK, 100MG ALTERNATING WITH 200MG ONCE DAILY EVERY OTHER DAY
     Route: 048
  10. ZEJULA [Suspect]
     Active Substance: NIRAPARIB
     Dosage: 1 DF, QD (AT NIGHT)
  11. ZEJULA [Suspect]
     Active Substance: NIRAPARIB
     Dosage: UNK (100MG ALTERNATING WITH 200MG QOD)
  12. ZEJULA [Suspect]
     Active Substance: NIRAPARIB
     Dosage: UNK (100MG ALTERNATING WITH 200MG QOD)
  13. ZEJULA [Suspect]
     Active Substance: NIRAPARIB
     Dosage: UNK,100MG ALTERNATING WITH 200MG DAILY

REACTIONS (18)
  - Hypoaesthesia [Unknown]
  - Peripheral swelling [Unknown]
  - Epistaxis [Unknown]
  - Dyspnoea [Recovering/Resolving]
  - Joint stiffness [Not Recovered/Not Resolved]
  - Insomnia [Recovering/Resolving]
  - Joint swelling [Unknown]
  - Arthralgia [Not Recovered/Not Resolved]
  - Depression [Unknown]
  - Platelet count decreased [Unknown]
  - Blood pressure increased [Not Recovered/Not Resolved]
  - Increased tendency to bruise [Unknown]
  - Nausea [Recovering/Resolving]
  - Weight decreased [Unknown]
  - Red blood cell count decreased [Unknown]
  - Constipation [Unknown]
  - Vomiting [Unknown]
  - Product use issue [Unknown]
